FAERS Safety Report 9313031 (Version 2)
Quarter: 2013Q3

REPORT INFORMATION
  Report Type: Spontaneous
  Country: US (occurrence: US)
  Receive Date: 20130528
  Receipt Date: 20130828
  Transmission Date: 20140515
  Serious: No
  Sender: FDA-Public Use
  Company Number: US-ABBOTT-13P-163-1071484-00

PATIENT
  Sex: Male
  Weight: 83.99 kg

DRUGS (4)
  1. ANDROGEL [Suspect]
     Indication: BLOOD TESTOSTERONE DECREASED
     Dosage: 2 PUMPS DAILY
     Dates: start: 201208
  2. CYMBALTA [Concomitant]
     Indication: MUSCULOSKELETAL PAIN
  3. NUCYNTA [Concomitant]
     Indication: MUSCULOSKELETAL PAIN
  4. DIAZEPAM [Concomitant]
     Indication: MUSCULOSKELETAL PAIN

REACTIONS (2)
  - Blood testosterone decreased [Not Recovered/Not Resolved]
  - Asthenia [Not Recovered/Not Resolved]
